FAERS Safety Report 18546737 (Version 1)
Quarter: 2020Q4

REPORT INFORMATION
  Report Type: Report from Study
  Country: FR (occurrence: FR)
  Receive Date: 20201125
  Receipt Date: 20201125
  Transmission Date: 20210114
  Serious: Yes (Other)
  Sender: FDA-Public Use
  Company Number: FR-PFIZER INC-2020453043

PATIENT

DRUGS (1)
  1. TOFACITINIB [Suspect]
     Active Substance: TOFACITINIB

REACTIONS (4)
  - Hepatocellular injury [Unknown]
  - Lipids abnormal [Unknown]
  - Hypercholesterolaemia [Unknown]
  - Demodicidosis [Unknown]
